FAERS Safety Report 21843910 (Version 1)
Quarter: 2023Q1

REPORT INFORMATION
  Report Type: Spontaneous
  Country: US (occurrence: None)
  Receive Date: 20230109
  Receipt Date: 20230109
  Transmission Date: 20230418
  Serious: No
  Sender: FDA-Public Use
  Company Number: None

PATIENT
  Age: 40 Year
  Sex: Female
  Weight: 81 kg

DRUGS (1)
  1. BUPRENORPHINE AND NALOXONE [Suspect]
     Active Substance: BUPRENORPHINE HYDROCHLORIDE\NALOXONE HYDROCHLORIDE
     Indication: Drug dependence
     Dosage: FREQUENCY : DAILY;?
     Route: 048
     Dates: start: 20201008

REACTIONS (4)
  - Stomatitis [None]
  - Product solubility abnormal [None]
  - Oral discomfort [None]
  - Product substitution issue [None]

NARRATIVE: CASE EVENT DATE: 20230109
